FAERS Safety Report 13295230 (Version 1)
Quarter: 2017Q1

REPORT INFORMATION
  Report Type: Spontaneous
  Country: US (occurrence: US)
  Receive Date: 20170303
  Receipt Date: 20170303
  Transmission Date: 20170428
  Serious: No
  Sender: FDA-Public Use
  Company Number: US-JNJFOC-20161216446

PATIENT
  Age: 83 Year
  Sex: Female
  Weight: 53.52 kg

DRUGS (3)
  1. XARELTO [Suspect]
     Active Substance: RIVAROXABAN
     Indication: CEREBROVASCULAR ACCIDENT PROPHYLAXIS
     Dosage: AT 4:00 OR 4:30 IN THE AFTERNOON, UNKNOWN??IF SHE TAKES IT WITH MEAL
     Route: 048
     Dates: start: 2016
  2. XARELTO [Suspect]
     Active Substance: RIVAROXABAN
     Indication: ATRIAL FIBRILLATION
     Dosage: AT 4:00 OR 4:30 IN THE AFTERNOON, UNKNOWN??IF SHE TAKES IT WITH MEAL
     Route: 048
     Dates: start: 2016
  3. LOSARTAN. [Concomitant]
     Active Substance: LOSARTAN
     Indication: HYPERTENSION
     Route: 065

REACTIONS (2)
  - Inappropriate schedule of drug administration [Unknown]
  - Confusional state [Unknown]

NARRATIVE: CASE EVENT DATE: 20161217
